FAERS Safety Report 15585693 (Version 1)
Quarter: 2018Q4

REPORT INFORMATION
  Report Type: Spontaneous
  Country: JP (occurrence: JP)
  Receive Date: 20181105
  Receipt Date: 20181105
  Transmission Date: 20190205
  Serious: Yes (Hospitalization)
  Sender: FDA-Public Use
  Company Number: JP-PFIZER INC-2018433603

PATIENT
  Sex: Female

DRUGS (1)
  1. SELARA [Suspect]
     Active Substance: EPLERENONE
     Dosage: UNK
     Route: 048

REACTIONS (2)
  - Hyponatraemia [Not Recovered/Not Resolved]
  - Blood pressure systolic increased [Unknown]

NARRATIVE: CASE EVENT DATE: 201707
